FAERS Safety Report 5020078-4 (Version None)
Quarter: 2006Q2

REPORT INFORMATION
  Report Type: 
  Country: None (occurrence: None)
  Receive Date: 20060607
  Receipt Date: 20060530
  Transmission Date: 20061013
  Serious: Yes (Life-Threatening, Hospitalization)
  Sender: FDA-Public Use
  Company Number: PT-GLAXOSMITHKLINE-B0426560A

PATIENT
  Age: 30 Year
  Sex: Female

DRUGS (8)
  1. CLAVAMOX [Suspect]
     Indication: TOOTH INFECTION
     Route: 048
     Dates: start: 20060321, end: 20060322
  2. PREDNISOLONE [Concomitant]
     Indication: SYSTEMIC LUPUS ERYTHEMATOSUS
     Route: 048
  3. SIMVASTATIN [Concomitant]
     Route: 065
  4. PROPANOLOL HYDROCHLORIDE [Concomitant]
     Route: 048
  5. ACETYLSALICYLIC ACID SRT [Concomitant]
     Route: 048
  6. ASCORBIC ACID [Concomitant]
     Route: 048
  7. AZATHIOPRINE [Concomitant]
     Route: 048
  8. CAPTOPRIL [Concomitant]
     Route: 048

REACTIONS (3)
  - DERMATITIS EXFOLIATIVE [None]
  - RENAL FAILURE ACUTE [None]
  - RHABDOMYOLYSIS [None]
